FAERS Safety Report 22050813 (Version 2)
Quarter: 2023Q1

REPORT INFORMATION
  Report Type: Spontaneous
  Country: US (occurrence: US)
  Receive Date: 20230301
  Receipt Date: 20230302
  Transmission Date: 20230417
  Serious: Yes (Hospitalization, Other)
  Sender: FDA-Public Use
  Company Number: US-BRISTOL-MYERS SQUIBB COMPANY-2023-029877

PATIENT
  Age: 76 Year
  Sex: Male
  Weight: 63.6 kg

DRUGS (7)
  1. REVLIMID [Suspect]
     Active Substance: LENALIDOMIDE
     Indication: Plasma cell myeloma
     Dosage: FRE:28 UNITS NOT SPECIFIED.
     Route: 048
  2. ALBUTEROL [Concomitant]
     Active Substance: ALBUTEROL
  3. XANAX [Concomitant]
     Active Substance: ALPRAZOLAM
  4. APIXABAN [Concomitant]
     Active Substance: APIXABAN
  5. DOCUSATE [Concomitant]
     Active Substance: DOCUSATE
  6. GABAPENTIN [Concomitant]
     Active Substance: GABAPENTIN
  7. INSULIN PORK\INSULIN PURIFIED PORK [Concomitant]
     Active Substance: INSULIN PORK\INSULIN PURIFIED PORK

REACTIONS (3)
  - Hypoaesthesia [Unknown]
  - Neuropathy peripheral [Unknown]
  - Thrombocytopenia [Unknown]

NARRATIVE: CASE EVENT DATE: 20230227
